FAERS Safety Report 9455760 (Version 1)
Quarter: 2013Q3

REPORT INFORMATION
  Report Type: Spontaneous
  Country: TR (occurrence: TR)
  Receive Date: 20130813
  Receipt Date: 20130813
  Transmission Date: 20140515
  Serious: Yes (Hospitalization)
  Sender: FDA-Public Use
  Company Number: TR-009507513-1307TUR013275

PATIENT
  Age: 10 Year
  Sex: Female
  Weight: 36.9 kg

DRUGS (2)
  1. DESOLETT [Suspect]
     Indication: VAGINAL HAEMORRHAGE
     Dosage: 1 PILL/DAY
     Route: 048
     Dates: start: 20111210, end: 20111227
  2. DESOLETT [Suspect]
     Indication: MENORRHAGIA

REACTIONS (1)
  - Decidual cast [Recovered/Resolved]
